FAERS Safety Report 8811971 (Version 3)
Quarter: 2012Q4

REPORT INFORMATION
  Report Type: 
  Country: IT (occurrence: IT)
  Receive Date: 20120927
  Receipt Date: 20121101
  Transmission Date: 20130627
  Serious: Yes (Hospitalization)
  Sender: FDA-Public Use
  Company Number: IT-009507513-1209ITA005011

PATIENT
  Age: 43 Year
  Sex: Male

DRUGS (7)
  1. MIRTAZAPINE [Suspect]
     Indication: INTENTIONAL SELF-INJURY
     Dosage: 4 DF, Total administration
     Route: 048
     Dates: start: 20120908, end: 20120908
  2. MIRTAZAPINE [Suspect]
     Indication: DEPRESSION
     Dosage: 180 mg, once
     Route: 048
     Dates: start: 20121019, end: 20121019
  3. MIRTAZAPINE [Suspect]
     Dosage: 30 mg, qd
     Route: 048
  4. EUTIMIL [Suspect]
     Indication: INTENTIONAL SELF-INJURY
     Dosage: 60 mg, Total administration
     Route: 048
     Dates: start: 20120908, end: 20120908
  5. CITALOPRAM [Suspect]
     Indication: INTENTIONAL SELF-INJURY
     Dosage: 3 DF, Total administration
     Route: 048
     Dates: start: 20120908, end: 20120908
  6. RIVOTRIL [Concomitant]
     Dosage: UNK
  7. DALMADORM [Concomitant]

REACTIONS (6)
  - Drug abuse [Recovered/Resolved]
  - Tachycardia [Recovered/Resolved]
  - Tachycardia [Recovering/Resolving]
  - Sopor [Recovering/Resolving]
  - Intentional self-injury [Recovering/Resolving]
  - Drug abuse [Recovering/Resolving]
